FAERS Safety Report 8548865-6 (Version None)
Quarter: 2012Q3

REPORT INFORMATION
  Report Type: 
  Country: None (occurrence: None)
  Receive Date: 20120730
  Receipt Date: 20120726
  Transmission Date: 20120928
  Serious: Yes (Other)
  Sender: FDA-Public Use
  Company Number: PHHY2012ZA029055

PATIENT
  Age: 60 Year
  Sex: Male

DRUGS (10)
  1. METFORMIN HYDROCHLORIDE [Concomitant]
     Dosage: 850 MG, BID
  2. VOLTAREN [Concomitant]
     Dosage: 25 MG, BID
  3. DIOVAN HCT [Suspect]
     Indication: HYPERTENSION
     Dosage: 160 MG VALS AND UNKNOWN HYDRO
  4. VALSARTAN  AND HYDROCHLOROTHIAZIDE [Suspect]
     Indication: HYPERTENSION
     Dosage: 1 DF, DAILY (160 MG VALS AND 12.5 HYDRO)
     Dates: start: 20110601
  5. AMLOC [Concomitant]
     Dosage: UNK
  6. GEN-PAYNE [Concomitant]
     Dosage: 10 MG CODA, 200 MG IBO AND 250 MG PARA)
  7. SPASMEND [Concomitant]
     Dosage: (150 MG MEPHENSIN AND 500 MG PARA)
  8. ALPRAZOLAM [Concomitant]
     Indication: ANXIETY
     Dosage: UKN, EVERY SECOND OR THIRD NIGHT
  9. SIMVASTATIN [Concomitant]
     Dosage: 10 MG, DAILY
  10. MYPRODOL [Concomitant]

REACTIONS (6)
  - DIABETES MELLITUS [None]
  - MASS [None]
  - SCAB [None]
  - HEADACHE [None]
  - STRESS [None]
  - PRURITUS [None]
